FAERS Safety Report 24226482 (Version 1)
Quarter: 2024Q3

REPORT INFORMATION
  Report Type: Spontaneous
  Country: JP (occurrence: JP)
  Receive Date: 20240820
  Receipt Date: 20240820
  Transmission Date: 20241017
  Serious: Yes (Other)
  Sender: Visiox
  Company Number: JP-SANTEN-2024-AER-00359

PATIENT
  Age: 53 Year
  Sex: Male

DRUGS (1)
  1. OMIDENEPAG ISOPROPYL [Suspect]
     Active Substance: OMIDENEPAG ISOPROPYL
     Indication: Glaucoma
     Dosage: ONCE A DAY FOR BOTH EYES (1 IN 1 D)
     Route: 047

REACTIONS (1)
  - Retinal detachment [Unknown]

NARRATIVE: CASE EVENT DATE: 20240801
